FAERS Safety Report 16168662 (Version 3)
Quarter: 2019Q2

REPORT INFORMATION
  Report Type: Report from Study
  Country: US (occurrence: US)
  Receive Date: 20190408
  Receipt Date: 20190618
  Transmission Date: 20190711
  Serious: No
  Sender: FDA-Public Use
  Company Number: US-ROCHE-2298725

PATIENT
  Sex: Male

DRUGS (1)
  1. OCREVUS [Suspect]
     Active Substance: OCRELIZUMAB
     Indication: MULTIPLE SCLEROSIS
     Dosage: DATE OF PREVIOUS INFUSION : 08-OCT-2018 ?DATE OF NEXT INFUSION : 25-MAR-2019
     Route: 065

REACTIONS (1)
  - Urinary tract infection [Unknown]
